FAERS Safety Report 5014711-0 (Version None)
Quarter: 2006Q2

REPORT INFORMATION
  Report Type: 
  Country: None (occurrence: None)
  Receive Date: 20060531
  Receipt Date: 20060516
  Transmission Date: 20061013
  Serious: Yes (Hospitalization, Other)
  Sender: FDA-Public Use
  Company Number: US-GLAXOSMITHKLINE-A0605827A

PATIENT
  Age: 54 Year
  Sex: Male
  Weight: 63.6 kg

DRUGS (1)
  1. ARIXTRA [Suspect]
     Indication: THROMBOSIS PROPHYLAXIS
     Dosage: 2.5MG UNKNOWN
     Route: 058

REACTIONS (3)
  - CATHETER RELATED COMPLICATION [None]
  - CATHETER SITE HAEMORRHAGE [None]
  - HAEMORRHAGE [None]
